FAERS Safety Report 9648039 (Version 1)
Quarter: 2013Q4

REPORT INFORMATION
  Report Type: Spontaneous
  Country: KR (occurrence: KR)
  Receive Date: 20131028
  Receipt Date: 20131028
  Transmission Date: 20140711
  Serious: Yes (Other)
  Sender: FDA-Public Use
  Company Number: KR-BAYER-2013-127494

PATIENT
  Age: 55 Year
  Sex: Male

DRUGS (2)
  1. NEXAVAR [Suspect]
     Indication: MALIGNANT MESENTERIC NEOPLASM
     Dosage: DAILY DOSE 800 MG
     Route: 048
     Dates: start: 20130204
  2. NEXAVAR [Suspect]
     Indication: HEPATIC CANCER RECURRENT

REACTIONS (1)
  - Neoplasm progression [None]
